FAERS Safety Report 17065567 (Version 3)
Quarter: 2019Q4

REPORT INFORMATION
  Report Type: Spontaneous
  Country: JP (occurrence: JP)
  Receive Date: 20191122
  Receipt Date: 20191220
  Transmission Date: 20200122
  Serious: Yes (Death)
  Sender: FDA-Public Use
  Company Number: JP-OTSUKA-2019_039239

PATIENT
  Age: 71 Year
  Sex: Male

DRUGS (1)
  1. SAMSCA [Suspect]
     Active Substance: TOLVAPTAN
     Indication: CONGENITAL CYSTIC KIDNEY DISEASE
     Dosage: 60MG/DAY, FREQUENCY UNKNOWN
     Route: 048
     Dates: start: 20151109, end: 20190110

REACTIONS (3)
  - Aortic dissection [Fatal]
  - Metastases to lymph nodes [Fatal]
  - Rectal cancer [Fatal]

NARRATIVE: CASE EVENT DATE: 20170913
